FAERS Safety Report 17749295 (Version 1)
Quarter: 2020Q2

REPORT INFORMATION
  Report Type: Spontaneous
  Country: CN (occurrence: CN)
  Receive Date: 20200506
  Receipt Date: 20200506
  Transmission Date: 20200714
  Serious: Yes (Hospitalization, Other)
  Sender: FDA-Public Use
  Company Number: CN-ROCHE-2592681

PATIENT
  Age: 63 Year
  Sex: Male

DRUGS (4)
  1. AVASTIN [Suspect]
     Active Substance: BEVACIZUMAB
     Indication: NEUROENDOCRINE CARCINOMA
     Route: 065
     Dates: start: 20190711
  2. ETOPOSIDE. [Concomitant]
     Active Substance: ETOPOSIDE
     Indication: NEUROENDOCRINE CARCINOMA
     Route: 065
     Dates: start: 20190711
  3. CARBOPLATIN. [Concomitant]
     Active Substance: CARBOPLATIN
     Indication: NEUROENDOCRINE CARCINOMA
     Route: 065
     Dates: start: 20190711
  4. CATEQUENTINIB. [Concomitant]
     Active Substance: CATEQUENTINIB
     Indication: NEUROENDOCRINE CARCINOMA
     Route: 065
     Dates: start: 20190903

REACTIONS (2)
  - Bone marrow failure [Unknown]
  - Subileus [Unknown]
